FAERS Safety Report 7904497-1 (Version None)
Quarter: 2011Q4

REPORT INFORMATION
  Report Type: 
  Country: None (occurrence: None)
  Receive Date: 20111109
  Receipt Date: 20111031
  Transmission Date: 20120403
  Serious: Yes (Other)
  Sender: FDA-Public Use
  Company Number: CN-ASTRAZENECA-2011SE65433

PATIENT
  Age: 50 Year
  Sex: Female
  Weight: 55 kg

DRUGS (1)
  1. PRILOSEC [Suspect]
     Indication: GASTRITIS EROSIVE
     Route: 048
     Dates: start: 20111001

REACTIONS (1)
  - ALANINE AMINOTRANSFERASE INCREASED [None]
